FAERS Safety Report 23282549 (Version 1)
Quarter: 2023Q4

REPORT INFORMATION
  Report Type: Spontaneous
  Country: US (occurrence: None)
  Receive Date: 20231208
  Receipt Date: 20231208
  Transmission Date: 20240110
  Serious: Yes (Life-Threatening, Disabling)
  Sender: FDA-Public Use
  Company Number: None

PATIENT
  Age: 41 Year
  Sex: Female
  Weight: 68.85 kg

DRUGS (2)
  1. ZOFRAN [Suspect]
     Active Substance: ONDANSETRON HYDROCHLORIDE
     Indication: Nausea
     Dosage: FREQUENCY : DAILY;?
     Route: 048
     Dates: start: 20231104, end: 20231104
  2. MAGNESIUM [Concomitant]
     Active Substance: MAGNESIUM

REACTIONS (12)
  - Dehydration [None]
  - Nausea [None]
  - Lethargy [None]
  - Panic attack [None]
  - Hypoaesthesia oral [None]
  - Dizziness [None]
  - Confusional state [None]
  - Dyspnoea [None]
  - Hypoaesthesia [None]
  - Swelling [None]
  - Stress [None]
  - Gait disturbance [None]

NARRATIVE: CASE EVENT DATE: 20231104
